FAERS Safety Report 16951963 (Version 3)
Quarter: 2020Q2

REPORT INFORMATION
  Report Type: Spontaneous
  Country: FR (occurrence: FR)
  Receive Date: 20191023
  Receipt Date: 20200409
  Transmission Date: 20200713
  Serious: Yes (Death, Life-Threatening, Hospitalization, Other)
  Sender: FDA-Public Use
  Company Number: FR-PFIZER INC-2019456704

PATIENT
  Age: 70 Year
  Sex: Male

DRUGS (14)
  1. CARBOPLATIN. [Concomitant]
     Active Substance: CARBOPLATIN
     Dosage: UNK (THE SECOND LINE THERAPY)
     Dates: start: 201406
  2. CETUXIMAB. [Concomitant]
     Active Substance: CETUXIMAB
     Indication: METASTASES TO PELVIS
     Dosage: UNK
     Dates: start: 2013
  3. CETUXIMAB. [Concomitant]
     Active Substance: CETUXIMAB
     Indication: TONSIL CANCER
     Dosage: UNK (THE SECOND LINE THERAPY)
     Dates: start: 201406
  4. CAPECITABINE. [Concomitant]
     Active Substance: CAPECITABINE
     Dosage: UNK (THE SECOND LINE THERAPY)
     Dates: start: 201406
  5. DOCETAXEL. [Concomitant]
     Active Substance: DOCETAXEL
     Indication: METASTASES TO PELVIS
     Dosage: UNK
     Dates: start: 2013
  6. CAPECITABINE. [Concomitant]
     Active Substance: CAPECITABINE
     Indication: METASTASES TO SPINE
     Dosage: UNK
     Dates: start: 2009
  7. CETUXIMAB. [Concomitant]
     Active Substance: CETUXIMAB
     Indication: METASTASES TO SPINE
     Dosage: UNK, WEEKLY
     Dates: start: 2009
  8. DOCETAXEL. [Concomitant]
     Active Substance: DOCETAXEL
     Indication: METASTASES TO SPINE
     Dosage: UNK
     Dates: start: 2009
  9. DOCETAXEL. [Concomitant]
     Active Substance: DOCETAXEL
     Dosage: UNK (THE SECOND LINE THERAPY) (MAINTENANCE THERAPY)
     Dates: start: 201406
  10. CARBOPLATIN. [Concomitant]
     Active Substance: CARBOPLATIN
     Indication: METASTASES TO PELVIS
     Dosage: UNK
     Dates: start: 2013
  11. ZOLEDRONIC ACID [Suspect]
     Active Substance: ZOLEDRONIC ACID
     Indication: TONSIL CANCER
     Dosage: UNK (INITIAL FOLLOWED BY MAINTENACE THERAPY)
     Route: 042
     Dates: start: 2013
  12. ZOLEDRONIC ACID [Suspect]
     Active Substance: ZOLEDRONIC ACID
     Indication: CHEMOTHERAPY
  13. CAPECITABINE. [Concomitant]
     Active Substance: CAPECITABINE
     Indication: METASTASES TO PELVIS
     Dosage: UNK
     Dates: start: 2013
  14. CARBOPLATIN. [Concomitant]
     Active Substance: CARBOPLATIN
     Indication: METASTASES TO SPINE
     Dosage: UNK
     Dates: start: 2009

REACTIONS (6)
  - Hypovolaemic shock [Unknown]
  - Hypotension [Unknown]
  - Renal failure [Unknown]
  - Osteonecrosis of jaw [Unknown]
  - Mouth haemorrhage [Recovered/Resolved]
  - Haemoptysis [Unknown]

NARRATIVE: CASE EVENT DATE: 201408
